FAERS Safety Report 6946594-3 (Version None)
Quarter: 2010Q3

REPORT INFORMATION
  Report Type: 
  Country: None (occurrence: None)
  Receive Date: 20100824
  Receipt Date: 20100809
  Transmission Date: 20110219
  Serious: Yes (Disabling, Other)
  Sender: FDA-Public Use
  Company Number: ACO_01710_2010

PATIENT
  Sex: Female
  Weight: 48.0813 kg

DRUGS (3)
  1. AMPYRA [Suspect]
     Indication: GAIT DISTURBANCE
     Dosage: (10 MG, 10 MG ORAL)
     Route: 048
     Dates: start: 20100513, end: 20100724
  2. AMPYRA [Suspect]
     Indication: GAIT DISTURBANCE
     Dosage: (10 MG, 10 MG ORAL)
     Route: 048
     Dates: start: 20100728
  3. CALCIUM [Concomitant]

REACTIONS (3)
  - ABASIA [None]
  - NO THERAPEUTIC RESPONSE [None]
  - ORAL HERPES [None]
